FAERS Safety Report 11059401 (Version 1)
Quarter: 2015Q2

REPORT INFORMATION
  Report Type: Spontaneous
  Country: US (occurrence: None)
  Receive Date: 20150422
  Receipt Date: 20150422
  Transmission Date: 20150821
  Serious: Yes (Hospitalization)
  Sender: FDA-Public Use
  Company Number: None

PATIENT
  Age: 91 Year
  Sex: Male
  Weight: 61.4 kg

DRUGS (12)
  1. WARFARIN [Suspect]
     Active Substance: WARFARIN
     Indication: ATRIAL FIBRILLATION
     Dosage: 1 TAB, QHS/BEDTIME, ORAL
     Route: 048
  2. LOPRESSOR [Concomitant]
     Active Substance: METOPROLOL TARTRATE
  3. MILK OF MAG [Concomitant]
  4. OMEPRAZOLE. [Concomitant]
     Active Substance: OMEPRAZOLE
  5. DIGOXIN. [Concomitant]
     Active Substance: DIGOXIN
  6. ASA [Concomitant]
     Active Substance: ASPIRIN
  7. MVI [Concomitant]
     Active Substance: VITAMINS
  8. FLUOXETINE [Concomitant]
     Active Substance: FLUOXETINE\FLUOXETINE HYDROCHLORIDE
  9. GLIPIZIDE. [Concomitant]
     Active Substance: GLIPIZIDE
  10. KAYEXELATE [Concomitant]
  11. LACTULOSE. [Concomitant]
     Active Substance: LACTULOSE
  12. SIMVASTATIN. [Concomitant]
     Active Substance: SIMVASTATIN

REACTIONS (2)
  - International normalised ratio increased [None]
  - Haematuria [None]

NARRATIVE: CASE EVENT DATE: 20150313
